FAERS Safety Report 20209836 (Version 7)
Quarter: 2025Q2

REPORT INFORMATION
  Report Type: Report from Study
  Country: US (occurrence: US)
  Receive Date: 20211221
  Receipt Date: 20250611
  Transmission Date: 20250716
  Serious: Yes (Hospitalization)
  Sender: TAKEDA
  Company Number: US-TAKEDA-2021TUS080600

PATIENT
  Sex: Female
  Weight: 57.143 kg

DRUGS (15)
  1. HUMAN IMMUNOGLOBULIN G [Suspect]
     Active Substance: HUMAN IMMUNOGLOBULIN G
     Indication: Immunodeficiency common variable
     Dosage: 10 GRAM, 1/WEEK
  2. HUMAN IMMUNOGLOBULIN G [Suspect]
     Active Substance: HUMAN IMMUNOGLOBULIN G
     Dosage: 11 GRAM, 1/WEEK
  3. PREDNISONE [Suspect]
     Active Substance: PREDNISONE
  4. DIPHENHYDRAMINE HYDROCHLORIDE [Concomitant]
     Active Substance: DIPHENHYDRAMINE HYDROCHLORIDE
  5. SYMBICORT [Concomitant]
     Active Substance: BUDESONIDE\FORMOTEROL FUMARATE DIHYDRATE
  6. RITUXAN [Concomitant]
     Active Substance: RITUXIMAB
  7. EPINEPHRINE [Concomitant]
     Active Substance: EPINEPHRINE
  8. CALCIUM\CHOLECALCIFEROL [Concomitant]
     Active Substance: CALCIUM\CHOLECALCIFEROL
  9. VERAPAMIL [Concomitant]
     Active Substance: VERAPAMIL HYDROCHLORIDE
  10. ACETAMINOPHEN [Concomitant]
     Active Substance: ACETAMINOPHEN
  11. TYLENOL [Concomitant]
     Active Substance: ACETAMINOPHEN
  12. AVAPRO [Concomitant]
     Active Substance: IRBESARTAN
  13. VITAMIN C [Concomitant]
     Active Substance: ASCORBIC ACID
  14. LIDOCAINE [Concomitant]
     Active Substance: LIDOCAINE
  15. TRELEGY ELLIPTA [Concomitant]
     Active Substance: FLUTICASONE FUROATE\UMECLIDINIUM BROMIDE\VILANTEROL TRIFENATATE

REACTIONS (7)
  - Urinary tract infection [Not Recovered/Not Resolved]
  - Pleurisy [Unknown]
  - Chronic obstructive pulmonary disease [Unknown]
  - Weight increased [Unknown]
  - Insurance issue [Unknown]
  - Product dose omission issue [Unknown]
  - Infusion site haemorrhage [Unknown]
